FAERS Safety Report 5664593-9 (Version None)
Quarter: 2008Q1

REPORT INFORMATION
  Report Type: 
  Country: None (occurrence: None)
  Receive Date: 20080314
  Receipt Date: 20080304
  Transmission Date: 20080703
  Serious: Yes (Hospitalization)
  Sender: FDA-Public Use
  Company Number: JP-JNJFOC-20080201019

PATIENT
  Sex: Female

DRUGS (7)
  1. MICONAZOLE [Suspect]
     Route: 048
  2. MICONAZOLE [Suspect]
     Indication: OESOPHAGEAL CANDIDIASIS
     Route: 048
  3. WARFARIN SODIUM [Interacting]
     Route: 048
     Dates: start: 20070822, end: 20080129
  4. WARFARIN SODIUM [Interacting]
     Indication: ATRIAL FIBRILLATION
     Route: 048
     Dates: start: 20070822, end: 20080129
  5. ETIZOLAM [Concomitant]
     Indication: INSOMNIA
     Route: 048
  6. LANSOPRAZOLE [Concomitant]
     Indication: GASTRITIS
     Route: 048
  7. AMLODIPINE BESYLATE [Concomitant]
     Indication: HYPERTENSION
     Route: 048

REACTIONS (4)
  - DRUG INTERACTION [None]
  - HAEMOPTYSIS [None]
  - HAEMORRHAGE SUBCUTANEOUS [None]
  - INTERNATIONAL NORMALISED RATIO INCREASED [None]
